FAERS Safety Report 4417824-7 (Version None)
Quarter: 2004Q3

REPORT INFORMATION
  Report Type: 
  Country: None (occurrence: None)
  Receive Date: 20040807
  Receipt Date: 20040727
  Transmission Date: 20050211
  Serious: Yes (Other)
  Sender: FDA-Public Use
  Company Number: GB-MERCK-0407GBR00301

PATIENT
  Age: 2 Year
  Sex: Male

DRUGS (3)
  1. [THERAPY UNSPECIFIED] [Concomitant]
     Indication: NEPHROBLASTOMA
     Route: 065
  2. BLOOD, PLASMA [Concomitant]
     Route: 065
  3. COSMEGEN [Suspect]
     Indication: NEPHROBLASTOMA
     Route: 051

REACTIONS (2)
  - DISSEMINATED INTRAVASCULAR COAGULATION [None]
  - VENOUS OCCLUSION [None]
